FAERS Safety Report 4965909-9 (Version None)
Quarter: 2006Q2

REPORT INFORMATION
  Report Type: 
  Country: None (occurrence: None)
  Receive Date: 20060407
  Receipt Date: 20060404
  Transmission Date: 20061013
  Serious: Yes (Other)
  Sender: FDA-Public Use
  Company Number: 2006UW05900

PATIENT
  Age: 45 Year
  Sex: Male
  Weight: 117 kg

DRUGS (12)
  1. SEROQUEL [Suspect]
     Indication: POST-TRAUMATIC STRESS DISORDER
     Route: 048
     Dates: start: 20050601
  2. SEROQUEL [Suspect]
     Indication: ANXIETY
     Route: 048
     Dates: start: 20050601
  3. SEROQUEL [Suspect]
     Indication: PANIC ATTACK
     Route: 048
     Dates: start: 20050601
  4. PAXIL [Suspect]
     Dates: start: 20050601, end: 20060301
  5. HYDROCODONE [Concomitant]
  6. PSEUDOPHEDRINE [Concomitant]
  7. CLONAZEPAM [Concomitant]
  8. MECLIZINE [Concomitant]
  9. POTASSIUM [Concomitant]
  10. HYDROCHLOROTHIAZIDE [Concomitant]
  11. SULINDAC [Concomitant]
  12. BACLOFEN [Concomitant]

REACTIONS (10)
  - ASTHENIA [None]
  - BLINDNESS [None]
  - DIZZINESS [None]
  - HEADACHE [None]
  - HOSTILITY [None]
  - PALPITATIONS [None]
  - SUICIDAL IDEATION [None]
  - TINNITUS [None]
  - VISION BLURRED [None]
  - WEIGHT INCREASED [None]
